FAERS Safety Report 16730358 (Version 2)
Quarter: 2019Q3

REPORT INFORMATION
  Report Type: Spontaneous
  Country: US (occurrence: US)
  Receive Date: 20190822
  Receipt Date: 20190912
  Transmission Date: 20191005
  Serious: No
  Sender: FDA-Public Use
  Company Number: US-AMGEN-USASP2019133018

PATIENT
  Sex: Female

DRUGS (9)
  1. NEULASTA [Suspect]
     Active Substance: PEGFILGRASTIM
     Dosage: UNK UNK, AFTER CHEMO
     Route: 065
  2. ADRIAMYCIN [Concomitant]
     Active Substance: DOXORUBICIN HYDROCHLORIDE
     Indication: TRIPLE NEGATIVE BREAST CANCER
     Dosage: UNK
     Dates: start: 2019
  3. ADRIAMYCIN [Concomitant]
     Active Substance: DOXORUBICIN HYDROCHLORIDE
     Indication: BREAST NECROSIS
  4. CYCLOPHOSPHAMIDE. [Concomitant]
     Active Substance: CYCLOPHOSPHAMIDE
     Indication: TRIPLE NEGATIVE BREAST CANCER
     Dosage: UNK
     Dates: start: 2019
  5. CYCLOPHOSPHAMIDE. [Concomitant]
     Active Substance: CYCLOPHOSPHAMIDE
     Indication: BREAST NECROSIS
  6. TAXOL [Concomitant]
     Active Substance: PACLITAXEL
     Indication: TRIPLE NEGATIVE BREAST CANCER
     Dosage: UNK
     Dates: start: 2019
  7. TAXOL [Concomitant]
     Active Substance: PACLITAXEL
     Indication: BREAST NECROSIS
  8. NEULASTA [Suspect]
     Active Substance: PEGFILGRASTIM
     Indication: PRODUCT USED FOR UNKNOWN INDICATION
     Dosage: UNK UNK, AFTER CHEMO
     Route: 065
  9. NEULASTA [Suspect]
     Active Substance: PEGFILGRASTIM
     Dosage: UNK UNK, AFTER CHEMO
     Route: 065

REACTIONS (8)
  - Fatigue [Unknown]
  - Nausea [Unknown]
  - Chest pain [Recovering/Resolving]
  - Sleep disorder [Unknown]
  - Device issue [Unknown]
  - Pyrexia [Unknown]
  - Headache [Unknown]
  - Dyspnoea [Recovering/Resolving]

NARRATIVE: CASE EVENT DATE: 201908
